FAERS Safety Report 17218839 (Version 1)
Quarter: 2020Q1

REPORT INFORMATION
  Report Type: Spontaneous
  Country: US (occurrence: US)
  Receive Date: 20191230
  Receipt Date: 20191230
  Transmission Date: 20200409
  Serious: Yes (Other)
  Sender: FDA-Public Use
  Company Number: None

PATIENT
  Age: 44 Year
  Sex: Female
  Weight: 90 kg

DRUGS (4)
  1. NITROFURANTOIN 100MG CAPSULES [Suspect]
     Active Substance: NITROFURANTOIN
     Indication: BACTERIAL INFECTION
     Dosage: ?          QUANTITY:14 CAPSULE(S);?
     Route: 048
  2. WOMENS DAILY VITAMIN [Concomitant]
  3. VITAMIN B12 [Concomitant]
     Active Substance: CYANOCOBALAMIN
  4. BIRTH CONTROL [Concomitant]
     Active Substance: UNSPECIFIED INGREDIENT

REACTIONS (2)
  - Product physical issue [None]
  - Product substitution issue [None]

NARRATIVE: CASE EVENT DATE: 20191119
